FAERS Safety Report 19107641 (Version 1)
Quarter: 2021Q2

REPORT INFORMATION
  Report Type: Spontaneous
  Country: US (occurrence: US)
  Receive Date: 20210408
  Receipt Date: 20210408
  Transmission Date: 20210717
  Serious: Yes (Other)
  Sender: FDA-Public Use
  Company Number: US-GLAXOSMITHKLINE-US2021GSK077603

PATIENT
  Sex: Female

DRUGS (12)
  1. RANITIDINE. [Suspect]
     Active Substance: RANITIDINE
     Indication: URTICARIA CHRONIC
     Dosage: 150 MG, QD
     Route: 065
     Dates: start: 198601, end: 201901
  2. ZANTAC [Suspect]
     Active Substance: RANITIDINE HYDROCHLORIDE
     Indication: URTICARIA CHRONIC
     Dosage: 150 MG BOTH
     Route: 065
     Dates: start: 198601, end: 201901
  3. ZANTAC [Suspect]
     Active Substance: RANITIDINE HYDROCHLORIDE
     Dosage: UNK, QD
     Route: 065
     Dates: start: 198601, end: 201901
  4. RANITIDINE. [Suspect]
     Active Substance: RANITIDINE
     Indication: URTICARIA CHRONIC
     Dosage: 150 MG, QD
     Route: 065
     Dates: start: 198601, end: 201901
  5. ZANTAC [Suspect]
     Active Substance: RANITIDINE HYDROCHLORIDE
     Indication: URTICARIA CHRONIC
     Dosage: 150 MG BOTH
     Route: 065
     Dates: start: 198601, end: 201901
  6. RANITIDINE CAPSULE [Suspect]
     Active Substance: RANITIDINE
     Dosage: UNK, QD
     Route: 065
     Dates: start: 198601, end: 201901
  7. ZANTAC [Suspect]
     Active Substance: RANITIDINE HYDROCHLORIDE
     Dosage: UNK, QD
     Route: 065
     Dates: start: 198601, end: 201901
  8. RANITIDINE. [Suspect]
     Active Substance: RANITIDINE
     Dosage: UNK
  9. RANITIDINE. [Suspect]
     Active Substance: RANITIDINE
     Dosage: UNK
  10. RANITIDINE. [Suspect]
     Active Substance: RANITIDINE
     Indication: URTICARIA CHRONIC
     Dosage: 150 MG, QD
     Route: 065
     Dates: start: 198601, end: 201901
  11. RANITIDINE. [Suspect]
     Active Substance: RANITIDINE
     Dosage: UNK
  12. RANITIDINE CAPSULE [Suspect]
     Active Substance: RANITIDINE
     Indication: URTICARIA CHRONIC
     Dosage: 150 MG BOTH
     Route: 065
     Dates: start: 198601, end: 201901

REACTIONS (1)
  - Thyroid cancer [Unknown]
